FAERS Safety Report 9494106 (Version 1)
Quarter: 2013Q3

REPORT INFORMATION
  Report Type: Spontaneous
  Country: GB (occurrence: None)
  Receive Date: 20130827
  Receipt Date: 20130827
  Transmission Date: 20140515
  Serious: Yes (Other)
  Sender: FDA-Public Use
  Company Number: GER/UKI/13/0034198

PATIENT
  Age: 67 Year
  Sex: Male
  Weight: 91 kg

DRUGS (6)
  1. CETIRIZINE [Suspect]
     Indication: PRODUCT USED FOR UNKNOWN INDICATION
     Dates: start: 20130509, end: 20130608
  2. ASPIRIN (ACETYLSALICYLIC ACID) [Concomitant]
  3. MOMETASONE (MOMETASONE) [Concomitant]
  4. PARACETAMOL (PARACETAMOL) [Concomitant]
  5. RAMIPRIL (RAMIPRIL) [Concomitant]
  6. SIMVASTATIN (SIMVASTATIN) [Concomitant]

REACTIONS (1)
  - Eczema [None]
